FAERS Safety Report 15501884 (Version 1)
Quarter: 2018Q4

REPORT INFORMATION
  Report Type: Spontaneous
  Country: US (occurrence: US)
  Receive Date: 20181015
  Receipt Date: 20181015
  Transmission Date: 20190205
  Serious: No
  Sender: FDA-Public Use
  Company Number: US-AMGEN-USASL2018021882

PATIENT
  Age: 87 Year
  Sex: Male
  Weight: 90.7 kg

DRUGS (15)
  1. PROCRIT [Suspect]
     Active Substance: ERYTHROPOIETIN
     Indication: ANAEMIA
     Dosage: 40,000 UNIT, Q2WK (ONCE EVERY OTHER WEEK FOR 1 MONTH)
     Route: 058
     Dates: start: 201801
  2. ATENOLOL. [Concomitant]
     Active Substance: ATENOLOL
     Indication: ATRIAL FIBRILLATION
     Dosage: UNK (SINCE MORE THAN 10 YERAS)
  3. MAGNESIUM [Concomitant]
     Active Substance: MAGNESIUM
     Dosage: UNK UNK, QD
  4. SAW PALMETTO [Concomitant]
     Active Substance: HERBALS\SAW PALMETTO
     Dosage: UNK UNK, QD
  5. FISH OIL [Concomitant]
     Active Substance: FISH OIL
     Dosage: UNK UNK, QD
  6. VITAMIN D3 [Concomitant]
     Active Substance: CHOLECALCIFEROL
     Dosage: UNK UNK, QD
  7. ACETAMINOPHEN. [Concomitant]
     Active Substance: ACETAMINOPHEN
     Indication: PAIN
     Dosage: UNK UNK, AS NECESSARY
  8. SOTALOL. [Concomitant]
     Active Substance: SOTALOL
     Indication: ATRIAL FIBRILLATION
     Dosage: UNK (SINCE MORE THAN 10 YERAS)
  9. GLUCOSAMINE/CHONDROITIN [Concomitant]
     Dosage: UNK UNK, QD
  10. WARFARIN [Concomitant]
     Active Substance: WARFARIN
     Indication: ATRIAL FIBRILLATION
     Dosage: UNK, (SINCE MORE THAN 10 YERAS)
  11. VIT B 12 [Concomitant]
     Dosage: UNK UNK, QD
  12. MELATONIN [Concomitant]
     Active Substance: MELATONIN
     Dosage: UNK UNK, QD
  13. PROCRIT [Suspect]
     Active Substance: ERYTHROPOIETIN
     Indication: MYELODYSPLASTIC SYNDROME
     Dosage: 40,000 UNITS, QWK (WEEKLY FIRST 4 WEEKS)
     Route: 058
     Dates: start: 20171226, end: 201801
  14. ZOLPIDEM TARTRATE. [Concomitant]
     Active Substance: ZOLPIDEM TARTRATE
     Indication: SLEEP DISORDER
     Dosage: UNK, (SINCE MORE THAN 05 YERAS)
  15. ZINC. [Concomitant]
     Active Substance: ZINC
     Dosage: UNK UNK, QD

REACTIONS (3)
  - Haemoglobin decreased [Not Recovered/Not Resolved]
  - Back pain [Not Recovered/Not Resolved]
  - Off label use [Unknown]

NARRATIVE: CASE EVENT DATE: 201712
